FAERS Safety Report 8165590-4 (Version None)
Quarter: 2012Q1

REPORT INFORMATION
  Report Type: 
  Country: None (occurrence: None)
  Receive Date: 20120223
  Receipt Date: 20120223
  Transmission Date: 20120608
  Serious: Yes (Other)
  Sender: FDA-Public Use
  Company Number: None

PATIENT
  Sex: Male
  Weight: 61.2356 kg

DRUGS (2)
  1. CLINDAMYCIN 150MGS [Suspect]
     Indication: DEPRESSION
     Dosage: 1 TABLET 1 AT BEDTIME
  2. FLUPHENAZINE [Suspect]
     Indication: DEPRESSION
     Dosage: 2 TABLETS EVERY 2 TAB HOURS

REACTIONS (6)
  - REFUSAL OF TREATMENT BY PATIENT [None]
  - PRURITUS [None]
  - VISION BLURRED [None]
  - DIPLOPIA [None]
  - CONVULSION [None]
  - WOUND INFECTION [None]
